FAERS Safety Report 8914352 (Version 1)
Quarter: 2012Q4

REPORT INFORMATION
  Report Type: 
  Country: US (occurrence: US)
  Receive Date: 20121118
  Receipt Date: 20121118
  Transmission Date: 20130627
  Serious: Yes (Death, Hospitalization)
  Sender: FDA-Public Use
  Company Number: US-MYLANLABS-2012S1023028

PATIENT
  Age: 51 Year
  Sex: Female

DRUGS (2)
  1. CLONAZEPAM [Suspect]
     Indication: INTENTIONAL OVERDOSE
     Route: 065
  2. CARISOPRODOL [Suspect]
     Indication: INTENTIONAL OVERDOSE
     Route: 065

REACTIONS (8)
  - Intentional overdose [Fatal]
  - Unresponsive to stimuli [Recovering/Resolving]
  - Toxicity to various agents [Recovering/Resolving]
  - Pneumonia aspiration [Recovering/Resolving]
  - Urinary bladder rupture [Not Recovered/Not Resolved]
  - Tachypnoea [Not Recovered/Not Resolved]
  - Hyperhidrosis [Not Recovered/Not Resolved]
  - Pain [Not Recovered/Not Resolved]
